FAERS Safety Report 6461991-0 (Version None)
Quarter: 2009Q4

REPORT INFORMATION
  Report Type: 
  Country: None (occurrence: None)
  Receive Date: 20091024
  Receipt Date: 20091109
  Transmission Date: 20100525
  Serious: Yes (Hospitalization)
  Sender: FDA-Public Use
  Company Number: 2009AC000335

PATIENT
  Age: 61 Year
  Sex: Female

DRUGS (69)
  1. DIGOXIN [Suspect]
     Dosage: 0.25 MG; QD; PO
     Route: 048
  2. PROMETHAZINE [Concomitant]
  3. FLUOXETINE [Concomitant]
  4. HYDROCODONE [Concomitant]
  5. LORAZEPAM [Concomitant]
  6. CYPROHEPTADINE [Concomitant]
  7. HYDROCHLOROTHIAZIDE [Concomitant]
  8. CLARINEX [Concomitant]
  9. COMBIVENT [Concomitant]
  10. LASIX [Concomitant]
  11. PROZAC [Concomitant]
  12. LISINOPRIL [Concomitant]
  13. DOXYCYCLINE [Concomitant]
  14. ASPIRIN [Concomitant]
  15. MUCINEX [Concomitant]
  16. COUMADIN [Concomitant]
  17. GUAIFENESIN [Concomitant]
  18. NORVASC [Concomitant]
  19. ATENOLOL [Concomitant]
  20. PHENERGAN HCL [Concomitant]
  21. AMLODIPINE [Concomitant]
  22. MULTI-VITAMIN [Concomitant]
  23. ZOCOR [Concomitant]
  24. ADVAIR DISKUS 100/50 [Concomitant]
  25. PRILOSEC [Concomitant]
  26. IRON SULFATETHIAMIN COMPOUND TAB [Concomitant]
  27. ALBUTEROL [Concomitant]
  28. FUROSEMIDE [Concomitant]
  29. WARFARIN SODIUM [Concomitant]
  30. VITAMIN D [Concomitant]
  31. OMEPRAZOLE [Concomitant]
  32. PRAVASTATIN [Concomitant]
  33. BISACODYL [Concomitant]
  34. TRILYTE SOL [Concomitant]
  35. CHANTIX [Concomitant]
  36. SIMVASTATIN [Concomitant]
  37. CLINDAMYCIN [Concomitant]
  38. CLARITHROMYCIN [Concomitant]
  39. METRONIDAZOL [Concomitant]
  40. LABETALOL HCL [Concomitant]
  41. OXYCODONE HCL AND ACETAMINOPHEN [Concomitant]
  42. SULFACETAMIDE SODIUM [Concomitant]
  43. IBUPROFEN [Concomitant]
  44. PROPR-N/APAP [Concomitant]
  45. EFFEXOR [Concomitant]
  46. MICARDIS [Concomitant]
  47. ALPRAZOLAM [Concomitant]
  48. ACCUPRIL [Concomitant]
  49. NAPROXEN [Concomitant]
  50. CYCLOBENZAPRINE [Concomitant]
  51. FLEXTRA [Concomitant]
  52. SULFAMETHOXAZOLE [Concomitant]
  53. ALDEX [Concomitant]
  54. ZITHROMAX [Concomitant]
  55. ALLEGRA [Concomitant]
  56. COMBIVENT [Concomitant]
  57. NALEX [Concomitant]
  58. BEXTRA [Concomitant]
  59. ACETYLCYST [Concomitant]
  60. PROMETHAZINE [Concomitant]
  61. DRISDOL [Concomitant]
  62. HYDROCHLOROTHIAZIDE [Concomitant]
  63. ISOSORBIDE [Concomitant]
  64. RANITIDINE [Concomitant]
  65. AVELOX [Concomitant]
  66. COMBIVENT [Concomitant]
  67. CYPROHEPTA [Concomitant]
  68. FLUOXETINE [Concomitant]
  69. WELLBUTRIN [Concomitant]

REACTIONS (29)
  - ALCOHOL WITHDRAWAL SYNDROME [None]
  - ALOPECIA [None]
  - ATRIAL FIBRILLATION [None]
  - BRONCHITIS [None]
  - CARDIOACTIVE DRUG LEVEL INCREASED [None]
  - COUGH [None]
  - DECREASED APPETITE [None]
  - DEHYDRATION [None]
  - DIARRHOEA [None]
  - DYSPNOEA [None]
  - EAR PAIN [None]
  - ECONOMIC PROBLEM [None]
  - FATIGUE [None]
  - GASTRITIS [None]
  - GASTROOESOPHAGEAL REFLUX DISEASE [None]
  - HYPERTENSION [None]
  - HYPERTHYROIDISM [None]
  - HYPONATRAEMIA [None]
  - INJURY [None]
  - INTERNATIONAL NORMALISED RATIO INCREASED [None]
  - NAUSEA [None]
  - PALPITATIONS [None]
  - RENAL FAILURE CHRONIC [None]
  - SINUS CONGESTION [None]
  - SURGERY [None]
  - THERAPEUTIC AGENT TOXICITY [None]
  - TREMOR [None]
  - VOMITING [None]
  - WEIGHT DECREASED [None]
